FAERS Safety Report 6966745-4 (Version None)
Quarter: 2010Q3

REPORT INFORMATION
  Report Type: 
  Country: None (occurrence: None)
  Receive Date: 20100906
  Receipt Date: 20100826
  Transmission Date: 20110219
  Serious: Yes (Hospitalization)
  Sender: FDA-Public Use
  Company Number: SE-BAXTER-2010BH021612

PATIENT
  Sex: Male

DRUGS (6)
  1. GAMMAGARD LIQUID [Suspect]
     Indication: CATAPLEXY
     Route: 042
     Dates: start: 20100717, end: 20100717
  2. GAMMAGARD LIQUID [Suspect]
     Indication: NARCOLEPSY
     Route: 042
     Dates: start: 20100717, end: 20100717
  3. GAMMAGARD LIQUID [Suspect]
     Indication: OFF LABEL USE
     Route: 042
     Dates: start: 20100717, end: 20100717
  4. GAMMAGARD LIQUID [Suspect]
     Route: 042
     Dates: start: 20100718, end: 20100718
  5. GAMMAGARD LIQUID [Suspect]
     Route: 042
     Dates: start: 20100718, end: 20100718
  6. GAMMAGARD LIQUID [Suspect]
     Route: 042
     Dates: start: 20100718, end: 20100718

REACTIONS (5)
  - HEADACHE [None]
  - NAUSEA [None]
  - PHOTOSENSITIVITY REACTION [None]
  - PYREXIA [None]
  - VOMITING [None]
